FAERS Safety Report 17003639 (Version 1)
Quarter: 2019Q4

REPORT INFORMATION
  Report Type: Spontaneous
  Country: US (occurrence: US)
  Receive Date: 20191107
  Receipt Date: 20191107
  Transmission Date: 20200122
  Serious: Yes (Death)
  Sender: FDA-Public Use
  Company Number: US-GLENMARK PHARMACEUTICALS-2019GMK044097

PATIENT
  Age: 83 Year
  Sex: Female

DRUGS (2)
  1. HYDRALAZINE HCL [Suspect]
     Active Substance: HYDRALAZINE HYDROCHLORIDE
     Indication: SECONDARY HYPERTENSION
     Dosage: UNK
     Route: 065
  2. HYDRALAZINE HCL [Suspect]
     Active Substance: HYDRALAZINE HYDROCHLORIDE
     Indication: POSTOPERATIVE HYPERTENSION

REACTIONS (7)
  - Circulatory collapse [Fatal]
  - Product use in unapproved indication [Unknown]
  - Acute left ventricular failure [Fatal]
  - Hypotension [Fatal]
  - Ventricular fibrillation [Fatal]
  - Chest pain [Fatal]
  - Pulseless electrical activity [Fatal]
